FAERS Safety Report 11031343 (Version 4)
Quarter: 2015Q2

REPORT INFORMATION
  Report Type: Spontaneous
  Country: US (occurrence: US)
  Receive Date: 20150415
  Receipt Date: 20150623
  Transmission Date: 20150821
  Serious: No
  Sender: FDA-Public Use
  Company Number: US-PFIZER INC-2015118595

PATIENT
  Age: 8 Year
  Sex: Male
  Weight: 21 kg

DRUGS (7)
  1. PROBIOTIC [Concomitant]
     Active Substance: PROBIOTICS NOS
     Indication: NUTRITIONAL SUPPLEMENTATION
     Dosage: 1 DF, 1X/DAY
  2. CALTRATE 600+D [Concomitant]
     Indication: NUTRITIONAL SUPPLEMENTATION
     Dosage: UNK
  3. MULTIVITAMINS [Concomitant]
     Active Substance: VITAMINS
     Dosage: 1 DF, 1X/DAY
  4. FLOVENT [Concomitant]
     Active Substance: FLUTICASONE PROPIONATE
     Indication: ASTHMA
     Dosage: 220 ?G, 1X/DAY (2 PUFF ONCE DAILY )
  5. ZARONTIN [Suspect]
     Active Substance: ETHOSUXIMIDE
     Indication: PETIT MAL EPILEPSY
     Dosage: 5 ML, 2X/DAY
     Route: 048
     Dates: start: 20150216
  6. ZARONTIN [Suspect]
     Active Substance: ETHOSUXIMIDE
     Dosage: 4 ML, 2X/DAY
     Route: 048
     Dates: end: 20150414
  7. MOMETASONE [Concomitant]
     Active Substance: MOMETASONE
     Dosage: UNK, AS NEEDED
     Route: 061

REACTIONS (9)
  - Seborrhoeic dermatitis [Recovered/Resolved]
  - Malaise [Unknown]
  - Nausea [Recovered/Resolved]
  - Eye irritation [Recovered/Resolved]
  - Pain in extremity [Recovered/Resolved]
  - Pyrexia [Unknown]
  - Wheezing [Unknown]
  - Vomiting [Recovered/Resolved]
  - Abdominal pain upper [Recovered/Resolved]

NARRATIVE: CASE EVENT DATE: 2015
